FAERS Safety Report 5014792-4 (Version None)
Quarter: 2006Q2

REPORT INFORMATION
  Report Type: 
  Country: None (occurrence: None)
  Receive Date: 20060424
  Receipt Date: 20050811
  Transmission Date: 20061013
  Serious: Yes (Hospitalization, Other)
  Sender: FDA-Public Use
  Company Number: WAES 0508USA02121

PATIENT
  Age: 45 Year
  Sex: Male
  Weight: 99.7913 kg

DRUGS (7)
  1. SINGULAIR [Suspect]
     Indication: HYPERSENSITIVITY
     Dosage: 10 MG/BID/PO
     Route: 048
     Dates: end: 20050625
  2. SINGULAIR [Suspect]
     Indication: RHINITIS
     Dosage: 10 MG/BID/PO
     Route: 048
     Dates: end: 20050625
  3. ADVAIR DISKUS 100/50 [Concomitant]
  4. FLONASE [Concomitant]
  5. ALBUTEROL [Concomitant]
  6. COUGH, COLD, AND FLU THERAPIES [Concomitant]
  7. PRENISONE [Concomitant]

REACTIONS (2)
  - CONVULSION [None]
  - PRESCRIBED OVERDOSE [None]
